FAERS Safety Report 5334261-1 (Version None)
Quarter: 2007Q2

REPORT INFORMATION
  Report Type: 
  Country: None (occurrence: None)
  Receive Date: 20070523
  Receipt Date: 20070523
  Transmission Date: 20071010
  Serious: Yes (Other)
  Sender: FDA-Public Use
  Company Number: None

PATIENT
  Age: 9 Year
  Sex: Male
  Weight: 33.5662 kg

DRUGS (1)
  1. ZOSYN [Suspect]
     Indication: APPENDICITIS PERFORATED
     Dosage: 3.075 GM Q 8H IV
     Route: 042
     Dates: start: 20070425, end: 20070522

REACTIONS (3)
  - LABORATORY TEST ABNORMAL [None]
  - NEUTROPENIA [None]
  - WHITE BLOOD CELL COUNT DECREASED [None]
